FAERS Safety Report 9190437 (Version 1)
Quarter: 2013Q1

REPORT INFORMATION
  Report Type: Spontaneous
  Country: FR (occurrence: FR)
  Receive Date: 20130326
  Receipt Date: 20130326
  Transmission Date: 20140127
  Serious: Yes (Hospitalization)
  Sender: FDA-Public Use
  Company Number: FR-SANOFI-AVENTIS-2013SA028440

PATIENT
  Age: 31 Year
  Sex: Female

DRUGS (8)
  1. STILNOX [Suspect]
     Indication: TOXICITY TO VARIOUS AGENTS
     Route: 048
     Dates: start: 20121106, end: 20121107
  2. SKENAN [Suspect]
     Indication: TOXICITY TO VARIOUS AGENTS
     Route: 048
     Dates: start: 20121106, end: 20121107
  3. SUBUTEX [Suspect]
     Indication: TOXICITY TO VARIOUS AGENTS
     Route: 048
     Dates: start: 20121106, end: 20121107
  4. BACLOFEN [Concomitant]
     Route: 048
  5. XEROQUEL [Concomitant]
     Route: 048
  6. EFFEXOR [Concomitant]
     Route: 048
  7. SERESTA [Concomitant]
     Route: 048
  8. THERALENE [Concomitant]
     Route: 048
     Dates: start: 20121011

REACTIONS (3)
  - Acute respiratory failure [Recovered/Resolved]
  - Toxicity to various agents [Unknown]
  - Confusional state [Recovered/Resolved]
